FAERS Safety Report 11928252 (Version 11)
Quarter: 2016Q4

REPORT INFORMATION
  Report Type: Report from Study
  Country: US (occurrence: US)
  Receive Date: 20160119
  Receipt Date: 20161104
  Transmission Date: 20170206
  Serious: Yes (Hospitalization, Other)
  Sender: FDA-Public Use
  Company Number: US-BAYER-2015-470253

PATIENT
  Age: 47 Year
  Sex: Female
  Weight: 116 kg

DRUGS (17)
  1. ADEMPAS [Suspect]
     Active Substance: RIOCIGUAT
     Indication: PULMONARY ARTERIAL HYPERTENSION
     Dosage: 2.5 MG, TID
     Route: 048
  2. ZOFRAN [Concomitant]
     Active Substance: ONDANSETRON HYDROCHLORIDE
     Dosage: UNK
  3. UPTRAVI [Concomitant]
     Active Substance: SELEXIPAG
     Dosage: 200 ?G, BID
     Route: 042
  4. ADEMPAS [Suspect]
     Active Substance: RIOCIGUAT
     Indication: PULMONARY ARTERIAL HYPERTENSION
     Dosage: 0.5 MG, TID
     Route: 048
     Dates: start: 20151110
  5. ADEMPAS [Suspect]
     Active Substance: RIOCIGUAT
     Indication: PULMONARY ARTERIAL HYPERTENSION
     Dosage: 1 MG, TID
     Route: 048
  6. ADEMPAS [Suspect]
     Active Substance: RIOCIGUAT
     Indication: PULMONARY ARTERIAL HYPERTENSION
     Dosage: 2.5 MG, TID
     Route: 048
  7. REMODULIN [Suspect]
     Active Substance: TREPROSTINIL
     Dosage: UNK
     Route: 042
  8. SILDENAFIL. [Suspect]
     Active Substance: SILDENAFIL
     Dosage: STOPPED WHEN RIOCIGUAT WAS STARTED
  9. XARELTO [Concomitant]
     Active Substance: RIVAROXABAN
     Dosage: UNK
  10. OPSUMIT [Concomitant]
     Active Substance: MACITENTAN
     Dosage: UNK
  11. ADEMPAS [Suspect]
     Active Substance: RIOCIGUAT
     Indication: PULMONARY ARTERIAL HYPERTENSION
     Dosage: 2 MG, TID
  12. REMODULIN [Suspect]
     Active Substance: TREPROSTINIL
     Dosage: UNK
     Route: 042
     Dates: end: 20160412
  13. ADEMPAS [Suspect]
     Active Substance: RIOCIGUAT
     Indication: PULMONARY ARTERIAL HYPERTENSION
     Dosage: 2.5 MG, TID
     Route: 048
  14. ADEMPAS [Suspect]
     Active Substance: RIOCIGUAT
     Indication: PULMONARY ARTERIAL HYPERTENSION
     Dosage: 2.5 MG, TID
     Route: 048
  15. ADEMPAS [Suspect]
     Active Substance: RIOCIGUAT
     Indication: PULMONARY ARTERIAL HYPERTENSION
     Dosage: 1.5 MG, TID
     Route: 048
  16. ADEMPAS [Suspect]
     Active Substance: RIOCIGUAT
     Indication: PULMONARY ARTERIAL HYPERTENSION
     Dosage: 2.5 MG, TID
     Route: 048
  17. DIGOXIN. [Concomitant]
     Active Substance: DIGOXIN
     Dosage: UNK

REACTIONS (44)
  - Abdominal pain upper [None]
  - Vomiting [Recovered/Resolved]
  - Chest pain [Unknown]
  - Headache [None]
  - Abdominal discomfort [None]
  - Nausea [Recovered/Resolved]
  - Dyspnoea [Unknown]
  - Dyspnoea [Not Recovered/Not Resolved]
  - Pulmonary arterial wedge pressure decreased [None]
  - Fluid overload [None]
  - Catheter site pruritus [Unknown]
  - Nausea [None]
  - Drug dose omission [None]
  - Anxiety [Unknown]
  - Pain [None]
  - Condition aggravated [None]
  - Cardiovascular disorder [None]
  - Pulmonary hypertension [None]
  - Pulmonary embolism [None]
  - Peripheral swelling [None]
  - Diarrhoea [None]
  - Hypoaesthesia [Unknown]
  - Malaise [Unknown]
  - Application site pruritus [None]
  - Fluid retention [None]
  - Pulmonary arterial hypertension [None]
  - Fatigue [None]
  - Dyspnoea exertional [None]
  - Abdominal pain [None]
  - Paraesthesia [Unknown]
  - Oedema peripheral [None]
  - Irritable bowel syndrome [None]
  - Fatigue [Unknown]
  - Vomiting [None]
  - Feeling abnormal [None]
  - Gastric disorder [Unknown]
  - Diarrhoea [Unknown]
  - Angina pectoris [Unknown]
  - Bacterial infection [Unknown]
  - Dyspnoea [None]
  - Hospitalisation [Unknown]
  - Fluid retention [None]
  - Dizziness [Not Recovered/Not Resolved]
  - Catheter site pruritus [None]

NARRATIVE: CASE EVENT DATE: 20160912
